FAERS Safety Report 11224577 (Version 1)
Quarter: 2015Q2

REPORT INFORMATION
  Report Type: Spontaneous
  Country: US (occurrence: US)
  Receive Date: 20150629
  Receipt Date: 20150629
  Transmission Date: 20150821
  Serious: No
  Sender: FDA-Public Use
  Company Number: US-BRISTOL-MYERS SQUIBB COMPANY-BMS-2015-042977

PATIENT
  Sex: Female
  Weight: 113 kg

DRUGS (1)
  1. ORENCIA [Suspect]
     Active Substance: ABATACEPT
     Indication: RHEUMATOID ARTHRITIS
     Dosage: UNK
     Route: 058
     Dates: start: 20150624

REACTIONS (4)
  - Injection site nodule [Unknown]
  - Contusion [Unknown]
  - Injection site pain [Unknown]
  - Injection site erythema [Unknown]
